FAERS Safety Report 13083832 (Version 1)
Quarter: 2017Q1

REPORT INFORMATION
  Report Type: Spontaneous
  Country: US (occurrence: US)
  Receive Date: 20170104
  Receipt Date: 20170104
  Transmission Date: 20170428
  Serious: No
  Sender: FDA-Public Use
  Company Number: US-TEVA-725494ACC

PATIENT
  Sex: Male

DRUGS (1)
  1. PROAIR RESPICLICK [Suspect]
     Active Substance: ALBUTEROL SULFATE
     Indication: BRONCHOSPASM
     Route: 065

REACTIONS (4)
  - Chills [Unknown]
  - Dry throat [Unknown]
  - Headache [Unknown]
  - Vomiting [Unknown]
